FAERS Safety Report 8026377-6 (Version None)
Quarter: 2012Q1

REPORT INFORMATION
  Report Type: 
  Country: None (occurrence: None)
  Receive Date: 20120105
  Receipt Date: 20111227
  Transmission Date: 20120608
  Serious: Yes (Other)
  Sender: FDA-Public Use
  Company Number: US-ASTRAZENECA-2011SE78560

PATIENT
  Age: 72 Year
  Sex: Female
  Weight: 72.6 kg

DRUGS (18)
  1. NEXIUM [Suspect]
     Route: 048
  2. OXYCODONE/ACETAMINOPHEN [Concomitant]
     Indication: PAIN
  3. SEROQUEL XR [Suspect]
     Indication: MAJOR DEPRESSION
     Route: 048
  4. LOPRESSOR [Concomitant]
  5. CYMBALTA [Concomitant]
  6. ZETIA [Concomitant]
  7. FUROSEMIDE [Concomitant]
  8. NITROSTAT [Concomitant]
     Indication: ANGINA PECTORIS
  9. DILTIAZEM HCL [Concomitant]
  10. ISOSORBIDE MONONITRATE [Concomitant]
  11. OXYCODONE/ACETAMINOPHEN [Concomitant]
  12. WARFARIN [Concomitant]
     Indication: ANTICOAGULANT THERAPY
  13. PLAVIX [Concomitant]
  14. BENZONATATE [Concomitant]
     Indication: NASOPHARYNGITIS
  15. PERCOCET [Concomitant]
  16. XANAX [Concomitant]
  17. LEVOTHYROXINE SODIUM [Concomitant]
  18. PRIMIDONE [Concomitant]

REACTIONS (4)
  - MITRAL VALVE DISEASE [None]
  - PSYCHOGENIC PAIN DISORDER [None]
  - NASOPHARYNGITIS [None]
  - DRUG DOSE OMISSION [None]
